FAERS Safety Report 25419160 (Version 1)
Quarter: 2025Q2

REPORT INFORMATION
  Report Type: Spontaneous
  Country: BR (occurrence: BR)
  Receive Date: 20250610
  Receipt Date: 20250610
  Transmission Date: 20250716
  Serious: Yes (Death, Other)
  Sender: ROCHE
  Company Number: BR-BoehringerIngelheim-2025-BI-075056

PATIENT
  Sex: Male

DRUGS (1)
  1. ALTEPLASE [Suspect]
     Active Substance: ALTEPLASE
     Indication: Ischaemic stroke
     Route: 065
     Dates: start: 2025, end: 2025

REACTIONS (3)
  - Brain death [Fatal]
  - Haemorrhagic transformation stroke [Unknown]
  - Confusional state [Unknown]

NARRATIVE: CASE EVENT DATE: 20250101
